FAERS Safety Report 25385073 (Version 1)
Quarter: 2025Q2

REPORT INFORMATION
  Report Type: Spontaneous
  Country: PL (occurrence: PL)
  Receive Date: 20250602
  Receipt Date: 20250602
  Transmission Date: 20250717
  Serious: Yes (Hospitalization)
  Sender: MERCK SHARP & DOHME LLC
  Company Number: PL-009507513-2289176

PATIENT
  Age: 52 Year
  Sex: Male

DRUGS (10)
  1. PEMBROLIZUMAB [Suspect]
     Active Substance: PEMBROLIZUMAB
     Indication: Clear cell renal cell carcinoma
     Dates: start: 20240808, end: 20240808
  2. PEMBROLIZUMAB [Suspect]
     Active Substance: PEMBROLIZUMAB
     Indication: Clear cell renal cell carcinoma
     Dates: start: 20240808, end: 20240808
  3. PEMBROLIZUMAB [Suspect]
     Active Substance: PEMBROLIZUMAB
     Indication: Clear cell renal cell carcinoma
     Dates: start: 20240628, end: 20240628
  4. PEMBROLIZUMAB [Suspect]
     Active Substance: PEMBROLIZUMAB
     Indication: Clear cell renal cell carcinoma
     Dates: start: 20240718, end: 20240718
  5. PEMBROLIZUMAB [Suspect]
     Active Substance: PEMBROLIZUMAB
     Indication: Clear cell renal cell carcinoma
     Dates: start: 20241010
  6. AXITINIB [Suspect]
     Active Substance: AXITINIB
     Indication: Clear cell renal cell carcinoma
     Dates: start: 20240808, end: 20240808
  7. AXITINIB [Suspect]
     Active Substance: AXITINIB
     Indication: Clear cell renal cell carcinoma
     Dates: start: 20240628, end: 20240628
  8. AXITINIB [Suspect]
     Active Substance: AXITINIB
     Indication: Clear cell renal cell carcinoma
     Dates: start: 20240718, end: 20240718
  9. AXITINIB [Suspect]
     Active Substance: AXITINIB
     Indication: Clear cell renal cell carcinoma
     Dates: start: 20240808, end: 20240808
  10. AXITINIB [Suspect]
     Active Substance: AXITINIB
     Indication: Clear cell renal cell carcinoma
     Dates: start: 20241010

REACTIONS (9)
  - Immune-mediated myocarditis [Unknown]
  - Hyperkalaemia [Unknown]
  - Hyperthyroidism [Unknown]
  - Heart failure with preserved ejection fraction [Unknown]
  - Atrial fibrillation [Unknown]
  - Eastern Cooperative Oncology Group performance status worsened [Unknown]
  - General physical health deterioration [Unknown]
  - Exercise tolerance decreased [Unknown]
  - Therapy partial responder [Unknown]

NARRATIVE: CASE EVENT DATE: 20240815
